FAERS Safety Report 11089433 (Version 2)
Quarter: 2015Q3

REPORT INFORMATION
  Report Type: Spontaneous
  Country: US (occurrence: None)
  Receive Date: 20150501
  Receipt Date: 20150710
  Transmission Date: 20151125
  Serious: Yes (Hospitalization)
  Sender: FDA-Public Use
  Company Number: 1713747-2015-999139

PATIENT
  Age: 58 Year
  Sex: Male

DRUGS (1)
  1. DELFLEX [Suspect]
     Active Substance: CALCIUM CHLORIDE\DEXTROSE MONOHYDRATE\MAGNESIUM CHLORIDE\SODIUM CHLORIDE\SODIUM LACTATE
     Indication: PERITONEAL DIALYSIS
     Route: 033

REACTIONS (8)
  - Amaurosis fugax [None]
  - Faecal incontinence [None]
  - Hyperhidrosis [None]
  - Cerebrovascular accident [None]
  - Procedural complication [None]
  - Loss of consciousness [None]
  - Urinary incontinence [None]
  - Blindness unilateral [None]

NARRATIVE: CASE EVENT DATE: 20131108
